FAERS Safety Report 19561588 (Version 2)
Quarter: 2021Q3

REPORT INFORMATION
  Report Type: Report from Study
  Country: US (occurrence: US)
  Receive Date: 20210716
  Receipt Date: 20210719
  Transmission Date: 20211014
  Serious: No
  Sender: FDA-Public Use
  Company Number: US-AGIOS-2107US02945

PATIENT

DRUGS (1)
  1. TIBSOVO [Suspect]
     Active Substance: IVOSIDENIB
     Indication: PRODUCT USED FOR UNKNOWN INDICATION
     Dosage: 250 MILLIGRAM, QD
     Route: 048
     Dates: start: 20210607

REACTIONS (3)
  - Off label use [Not Recovered/Not Resolved]
  - Muscular weakness [Unknown]
  - Memory impairment [Unknown]

NARRATIVE: CASE EVENT DATE: 2021
